FAERS Safety Report 10396224 (Version 1)
Quarter: 2014Q3

REPORT INFORMATION
  Report Type: Spontaneous
  Country: US (occurrence: US)
  Receive Date: 20140820
  Receipt Date: 20140820
  Transmission Date: 20150326
  Serious: Yes (Hospitalization, Other)
  Sender: FDA-Public Use
  Company Number: US-B.I. PHARMACEUTICALS,INC./RIDGEFIELD-2014-BI-38187BP

PATIENT
  Age: 62 Year
  Sex: Male

DRUGS (13)
  1. ZOCOR [Concomitant]
     Active Substance: SIMVASTATIN
     Dosage: 20 MG
     Route: 048
  2. TIKOSYN [Concomitant]
     Active Substance: DOFETILIDE
     Dosage: 0.5 MG
     Route: 048
     Dates: end: 20120530
  3. SAW PALMETTO [Concomitant]
     Active Substance: SAW PALMETTO
     Dosage: 1800 MG
     Route: 048
  4. MEXILETINE [Concomitant]
     Active Substance: MEXILETINE
     Dosage: 20 MG
     Route: 048
  5. COREG [Concomitant]
     Active Substance: CARVEDILOL
     Dosage: 0.5 MG
     Route: 048
  6. COQ10 [Concomitant]
     Active Substance: UBIDECARENONE
     Dosage: 200 MG
     Route: 048
  7. DIGOXIN. [Concomitant]
     Active Substance: DIGOXIN
     Dosage: 0.25 MG
     Route: 048
  8. PRADAXA [Suspect]
     Active Substance: DABIGATRAN ETEXILATE MESYLATE
     Indication: ATRIAL FIBRILLATION
     Dosage: 300 MG
     Route: 048
     Dates: start: 201205, end: 20120530
  9. LISINOPRIL. [Concomitant]
     Active Substance: LISINOPRIL
     Dosage: 10 MG
     Route: 048
     Dates: end: 20120530
  10. CALCIUM CITRATE [Concomitant]
     Active Substance: CALCIUM CITRATE
     Dosage: 630 MG
     Route: 048
  11. L-CARNITINE [Concomitant]
     Active Substance: CARNITINE
     Dosage: 1000 MG
     Route: 048
  12. CHROMIUM PICOLINATE [Concomitant]
     Active Substance: CHROMIUM PICOLINATE
     Dosage: 200 MG
     Route: 048
  13. MAGNESIUM CITRATE. [Concomitant]
     Active Substance: MAGNESIUM CITRATE
     Dosage: 225 MG
     Route: 048

REACTIONS (3)
  - Renal infarct [Unknown]
  - Atrial thrombosis [Unknown]
  - Renal failure acute [Unknown]

NARRATIVE: CASE EVENT DATE: 20120525
